FAERS Safety Report 17419103 (Version 1)
Quarter: 2020Q1

REPORT INFORMATION
  Report Type: Report from Study
  Country: US (occurrence: US)
  Receive Date: 20200214
  Receipt Date: 20200214
  Transmission Date: 20200409
  Serious: Yes (Other)
  Sender: FDA-Public Use
  Company Number: US-BIOGEN-2020BI00836656

PATIENT
  Sex: Female

DRUGS (1)
  1. TYSABRI [Suspect]
     Active Substance: NATALIZUMAB
     Indication: MULTIPLE SCLEROSIS
     Route: 042
     Dates: start: 20141010, end: 20191210

REACTIONS (3)
  - Spinal fracture [Recovered/Resolved]
  - Fall [Recovered/Resolved]
  - Radiculopathy [Recovered/Resolved]

NARRATIVE: CASE EVENT DATE: 2018
